FAERS Safety Report 11894597 (Version 1)
Quarter: 2016Q1

REPORT INFORMATION
  Report Type: Spontaneous
  Country: US (occurrence: None)
  Receive Date: 20160106
  Receipt Date: 20160106
  Transmission Date: 20160526
  Serious: Yes (Death, Hospitalization)
  Sender: FDA-Public Use
  Company Number: None

PATIENT
  Age: 74 Year
  Sex: Male
  Weight: 63.5 kg

DRUGS (4)
  1. HIBISCUS TEA [Concomitant]
  2. GARLIC TABLETS [Concomitant]
     Active Substance: GARLIC
  3. WARFARIN [Suspect]
     Active Substance: WARFARIN
     Indication: THROMBOSIS PROPHYLAXIS
     Dosage: 3
     Route: 048
     Dates: start: 20130612, end: 20151210
  4. L-CITRULLINE [Concomitant]
     Active Substance: CITRULLINE

REACTIONS (6)
  - Diet noncompliance [None]
  - Respiratory failure [None]
  - Drug effect decreased [None]
  - Haemorrhagic stroke [None]
  - Therapy change [None]
  - Incorrect dose administered [None]

NARRATIVE: CASE EVENT DATE: 20151214
